FAERS Safety Report 25980276 (Version 1)
Quarter: 2025Q4

REPORT INFORMATION
  Report Type: Spontaneous
  Country: US (occurrence: US)
  Receive Date: 20251030
  Receipt Date: 20251030
  Transmission Date: 20260118
  Serious: No
  Sender: MERCK SHARP & DOHME LLC
  Company Number: US-009507513-2344597

PATIENT
  Sex: Male

DRUGS (1)
  1. KEYTRUDA [Suspect]
     Active Substance: PEMBROLIZUMAB
     Indication: Lip and/or oral cavity cancer
     Route: 042
     Dates: start: 20251013

REACTIONS (4)
  - Stomatitis [Unknown]
  - Oral pain [Unknown]
  - Glossodynia [Unknown]
  - Ear pain [Unknown]

NARRATIVE: CASE EVENT DATE: 20251001
